FAERS Safety Report 11045352 (Version 2)
Quarter: 2015Q2

REPORT INFORMATION
  Report Type: Spontaneous
  Country: DE (occurrence: DE)
  Receive Date: 20150417
  Receipt Date: 20150528
  Transmission Date: 20150821
  Serious: Yes (Life-Threatening, Hospitalization)
  Sender: FDA-Public Use
  Company Number: DE-TEVA-555291GER

PATIENT
  Age: 58 Year
  Sex: Female
  Weight: 74 kg

DRUGS (1)
  1. CEFUROXIM-RATIOPHARM 250 MG FILMTABLETTEN [Suspect]
     Active Substance: CEFUROXIME
     Dosage: 250 MILLIGRAM DAILY;
     Route: 048
     Dates: start: 20150317, end: 20150317

REACTIONS (4)
  - Hypersensitivity [Recovered/Resolved]
  - Syncope [Recovered/Resolved]
  - Anaphylactic shock [Recovered/Resolved]
  - Erythema [Recovered/Resolved]

NARRATIVE: CASE EVENT DATE: 20150317
